FAERS Safety Report 5447201-1 (Version None)
Quarter: 2007Q3

REPORT INFORMATION
  Report Type: 
  Country: None (occurrence: None)
  Receive Date: 20070910
  Receipt Date: 20070903
  Transmission Date: 20080115
  Serious: Yes (Death)
  Sender: FDA-Public Use
  Company Number: PHBS2007JP14535

PATIENT
  Age: 62 Year
  Sex: Female

DRUGS (5)
  1. PRAMIPEXOLE DIHYDROCHLORIDE [Suspect]
     Dosage: 1.5 MG/D
     Route: 048
     Dates: start: 20050707
  2. NEODOPASOL [Suspect]
     Dosage: 300 MG/D
     Route: 048
  3. DOPS [Suspect]
     Dosage: 300 MG/D
     Route: 048
     Dates: start: 20050707
  4. DEPAS [Suspect]
     Dosage: 0.5 MG/D
     Route: 048
  5. COMTAN [Suspect]
     Indication: PARKINSON'S DISEASE
     Dosage: 100 MG/D
     Route: 048
     Dates: start: 20070809

REACTIONS (6)
  - CARDIAC DISORDER [None]
  - CARDIO-RESPIRATORY ARREST [None]
  - FALL [None]
  - INTUBATION [None]
  - RESUSCITATION [None]
  - SHOCK [None]
